FAERS Safety Report 9727629 (Version 1)
Quarter: 2013Q4

REPORT INFORMATION
  Report Type: Spontaneous
  Country: US (occurrence: US)
  Receive Date: 20131203
  Receipt Date: 20131203
  Transmission Date: 20140711
  Serious: No
  Sender: FDA-Public Use
  Company Number: US-009507513-1312USA001302

PATIENT
  Age: 35 Year
  Sex: Female

DRUGS (5)
  1. CLARITIN-D-24 [Suspect]
     Indication: NASOPHARYNGITIS
     Dosage: UNK, UNKNOWN
     Route: 048
  2. CLARITIN-D-24 [Suspect]
     Indication: SINUS CONGESTION
  3. CLARITIN-D-24 [Suspect]
     Indication: NASAL CONGESTION
  4. CLARITIN-D-24 [Suspect]
     Indication: FEELING ABNORMAL
  5. CLARITIN-D-24 [Suspect]
     Indication: HEADACHE

REACTIONS (2)
  - Restlessness [Unknown]
  - Insomnia [Unknown]
